FAERS Safety Report 6793850-8 (Version None)
Quarter: 2010Q2

REPORT INFORMATION
  Report Type: 
  Country: None (occurrence: None)
  Receive Date: 20100624
  Receipt Date: 20090320
  Transmission Date: 20101027
  Serious: Yes (Other)
  Sender: FDA-Public Use
  Company Number: US-PFIZER INC-2009162339

PATIENT
  Sex: Female

DRUGS (7)
  1. GEODON [Suspect]
     Dosage: 80 MBQ, 1X/DAY
     Route: 048
  2. CARBAMAZEPINE [Suspect]
  3. NEURONTIN [Concomitant]
     Dosage: 600 MG, 3X/DAY
     Route: 048
  4. ZOLOFT [Concomitant]
     Dosage: 100 MG, 1X/DAY
     Route: 048
  5. WELLBUTRIN XL [Concomitant]
     Dosage: 450 MG, 1X/DAY
     Route: 048
  6. TRAZODONE [Concomitant]
     Dosage: UNK
     Route: 048
  7. KLONOPIN [Concomitant]
     Indication: ANXIETY
     Dosage: UNK
     Route: 048

REACTIONS (2)
  - FATIGUE [None]
  - TARDIVE DYSKINESIA [None]
